FAERS Safety Report 6318422-0 (Version None)
Quarter: 2009Q3

REPORT INFORMATION
  Report Type: 
  Country: None (occurrence: None)
  Receive Date: 20090821
  Receipt Date: 20090811
  Transmission Date: 20100115
  Serious: Yes (Death, Hospitalization)
  Sender: FDA-Public Use
  Company Number: JP-PFIZER INC-2009250001

PATIENT
  Age: 44 Year

DRUGS (2)
  1. VFEND [Suspect]
     Route: 042
  2. VFEND [Suspect]

REACTIONS (2)
  - CARDIAC FAILURE ACUTE [None]
  - CARDIOMYOPATHY ACUTE [None]
